FAERS Safety Report 8923586 (Version 1)
Quarter: 2012Q4

REPORT INFORMATION
  Report Type: 
  Country: ZA (occurrence: ZA)
  Receive Date: 20121123
  Receipt Date: 20121123
  Transmission Date: 20130627
  Serious: Yes (Other)
  Sender: FDA-Public Use
  Company Number: PHHY2012ZA105121

PATIENT
  Sex: Male

DRUGS (2)
  1. DESFERAL [Suspect]
     Indication: ACUTE MYELOID LEUKAEMIA
     Dosage: UNK UKN, UNK
     Dates: start: 201208, end: 201208
  2. ANTIBIOTICS [Concomitant]
     Indication: PYREXIA
     Dosage: UNK UKN, UNK

REACTIONS (3)
  - Eye haemorrhage [Recovering/Resolving]
  - Hallucination, visual [Recovering/Resolving]
  - Colour blindness [Not Recovered/Not Resolved]
